FAERS Safety Report 21621267 (Version 1)
Quarter: 2022Q4

REPORT INFORMATION
  Report Type: Spontaneous
  Country: US (occurrence: None)
  Receive Date: 20221118
  Receipt Date: 20221118
  Transmission Date: 20230113
  Serious: No
  Sender: FDA-Public Use
  Company Number: None

PATIENT
  Age: 64 Year
  Sex: Female

DRUGS (3)
  1. OTEZLA [Suspect]
     Active Substance: APREMILAST
     Indication: Psoriasis
     Dosage: FREQUENCY : TWICE A DAY;?
     Route: 048
     Dates: start: 202211
  2. OTEZLA [Suspect]
     Active Substance: APREMILAST
     Indication: Actinic keratosis
  3. OTEZLA [Suspect]
     Active Substance: APREMILAST
     Indication: Seborrhoeic keratosis

REACTIONS (1)
  - Skin cancer [None]
